FAERS Safety Report 15491490 (Version 1)
Quarter: 2018Q4

REPORT INFORMATION
  Report Type: Spontaneous
  Country: ES (occurrence: ES)
  Receive Date: 20181012
  Receipt Date: 20181012
  Transmission Date: 20190205
  Serious: Yes (Other)
  Sender: FDA-Public Use
  Company Number: ES-INCYTE CORPORATION-2018IN010405

PATIENT

DRUGS (1)
  1. JAKAVI [Suspect]
     Active Substance: RUXOLITINIB
     Indication: MYELOFIBROSIS
     Dosage: 10 MG, Q12H
     Route: 065
     Dates: start: 20180928

REACTIONS (5)
  - Faeces discoloured [Unknown]
  - Leukocytosis [Unknown]
  - Haemoglobin decreased [Unknown]
  - Haematemesis [Unknown]
  - Thrombocytosis [Unknown]
